FAERS Safety Report 5311155-9 (Version None)
Quarter: 2007Q2

REPORT INFORMATION
  Report Type: 
  Country: None (occurrence: None)
  Receive Date: 20070423
  Receipt Date: 20070410
  Transmission Date: 20071010
  Serious: Yes (Disabling)
  Sender: FDA-Public Use
  Company Number: 2007AL001437

PATIENT
  Sex: Male

DRUGS (7)
  1. DICLOFENAC SODIUM [Suspect]
     Indication: PROCEDURAL PAIN
     Dosage: 150 MG; QD; PO
     Route: 048
     Dates: start: 20020110, end: 20020212
  2. CAPTOPRIL [Concomitant]
  3. ASPIRIN [Concomitant]
  4. ATORVASTATIN CALCIUM [Concomitant]
  5. DILTIAZEM [Concomitant]
  6. PARACETAMOL [Concomitant]
  7. ISOSORBIDE MONONITRATE [Concomitant]

REACTIONS (3)
  - ERYTHEMA [None]
  - PHARMACEUTICAL PRODUCT COMPLAINT [None]
  - SWELLING FACE [None]
